FAERS Safety Report 7626966-4 (Version None)
Quarter: 2011Q3

REPORT INFORMATION
  Report Type: 
  Country: None (occurrence: None)
  Receive Date: 20110721
  Receipt Date: 20110712
  Transmission Date: 20111222
  Serious: Yes (Other)
  Sender: FDA-Public Use
  Company Number: US-ASTRAZENECA-2011SE41240

PATIENT
  Age: 66 Year
  Sex: Male
  Weight: 90.7 kg

DRUGS (7)
  1. CRESTOR [Suspect]
     Route: 048
     Dates: start: 20110705
  2. RAMIPRIL [Concomitant]
  3. CRESTOR [Suspect]
     Route: 048
     Dates: start: 20090101, end: 20110620
  4. FLONASE [Concomitant]
  5. PLAVIX [Concomitant]
  6. INDERAL LA [Concomitant]
  7. CRESTOR [Suspect]
     Dosage: 40 MG ON MONDAY, WEDNESDAY AND FRIDAY AND 20MG REST OF THE DAYS
     Route: 048
     Dates: start: 20110620, end: 20110705

REACTIONS (4)
  - PAIN [None]
  - AMAUROSIS FUGAX [None]
  - HEADACHE [None]
  - HIGH DENSITY LIPOPROTEIN DECREASED [None]
